FAERS Safety Report 4827821-5 (Version None)
Quarter: 2005Q4

REPORT INFORMATION
  Report Type: 
  Country: None (occurrence: None)
  Receive Date: 20051110
  Receipt Date: 20051026
  Transmission Date: 20060501
  Serious: Yes (Hospitalization)
  Sender: FDA-Public Use
  Company Number: US-2005-023316

PATIENT
  Age: 32 Year
  Sex: Female

DRUGS (1)
  1. YASMIN [Suspect]
     Dosage: 1 TAB (S), 1X/DAY, ORAL
     Route: 048

REACTIONS (5)
  - BURNS SECOND DEGREE [None]
  - BURNS THIRD DEGREE [None]
  - DEEP VEIN THROMBOSIS [None]
  - INJURY [None]
  - RESPIRATORY FUME INHALATION DISORDER [None]
